FAERS Safety Report 20597745 (Version 2)
Quarter: 2022Q1

REPORT INFORMATION
  Report Type: Spontaneous
  Country: US (occurrence: None)
  Receive Date: 20220315
  Receipt Date: 20220315
  Transmission Date: 20220423
  Serious: No
  Sender: FDA-Public Use
  Company Number: US-ROCHE-2917688

PATIENT
  Sex: Female
  Weight: 69.008 kg

DRUGS (8)
  1. XOLAIR [Suspect]
     Active Substance: OMALIZUMAB
     Indication: Urticaria chronic
     Dosage: STARTED APR OR MAY-2021 ONE SHOT IN EACH ARM
     Route: 058
     Dates: start: 2021
  2. FAMOTIDINE [Concomitant]
     Active Substance: FAMOTIDINE
     Indication: Urticaria chronic
     Dosage: STARTED APR OR MAY-2021
     Route: 048
     Dates: start: 2021
  3. MONTELUKAST [Concomitant]
     Active Substance: MONTELUKAST SODIUM
     Indication: Urticaria chronic
     Dosage: FOR LAST 3 MONTHS
     Route: 048
     Dates: start: 2021
  4. CETIRIZINE HCL [Concomitant]
     Active Substance: CETIRIZINE HYDROCHLORIDE
     Indication: Urticaria chronic
     Dosage: STARTED APR OR MAY-2021
     Route: 048
  5. VITAMIN D [Concomitant]
     Active Substance: VITAMIN D NOS
     Indication: Vitamin D deficiency
     Dosage: 1 PILL ONCE A DAY
     Route: 048
  6. ESTROGENS [Concomitant]
     Active Substance: ESTROGENS
     Indication: Postmenopause
     Dosage: STARTED ABOUT 3 YEARS AGO AS A TOPICAL PATCH
  7. PROGESTERONE [Concomitant]
     Active Substance: PROGESTERONE
     Indication: Postmenopause
     Dosage: STARTED ABOUT 3 YEARS AGO
     Route: 048
  8. ALLEGRA [Concomitant]
     Active Substance: FEXOFENADINE HYDROCHLORIDE
     Indication: Urticaria chronic
     Dosage: STARTED APR OR MAY-2021
     Route: 048
     Dates: start: 2021

REACTIONS (1)
  - Alopecia [Not Recovered/Not Resolved]

NARRATIVE: CASE EVENT DATE: 20210101
